FAERS Safety Report 7682568-5 (Version None)
Quarter: 2011Q3

REPORT INFORMATION
  Report Type: 
  Country: None (occurrence: None)
  Receive Date: 20110815
  Receipt Date: 20110805
  Transmission Date: 20111222
  Serious: Yes (Other)
  Sender: FDA-Public Use
  Company Number: US-ASTELLAS-2011US004766

PATIENT
  Sex: Male
  Weight: 89 kg

DRUGS (4)
  1. INSULIN [Concomitant]
     Indication: DIABETES MELLITUS
     Dosage: 40 MG, UID/QD
     Route: 065
  2. METOPROLOL TARTRATE [Concomitant]
     Indication: HYPERTENSION
     Dosage: 25 MG, BID
     Route: 048
  3. PROGRAF [Suspect]
     Indication: RENAL TRANSPLANT
     Dosage: 3 MG, BID
     Route: 048
     Dates: start: 20090301
  4. PHOSLO [Concomitant]
     Indication: PRODUCT USED FOR UNKNOWN INDICATION
     Dosage: 667 MG, TID
     Route: 048

REACTIONS (1)
  - DIALYSIS [None]
